FAERS Safety Report 10142885 (Version 2)
Quarter: 2014Q4

REPORT INFORMATION
  Report Type: Spontaneous
  Country: US (occurrence: US)
  Receive Date: 20140430
  Receipt Date: 20141010
  Transmission Date: 20150528
  Serious: Yes (Other)
  Sender: FDA-Public Use
  Company Number: US-BAYER-2014-062477

PATIENT
  Age: 26 Year
  Sex: Female
  Weight: 99 kg

DRUGS (7)
  1. OCELLA [Suspect]
     Active Substance: DROSPIRENONE\ETHINYL ESTRADIOL
     Indication: CONTRACEPTION
     Dosage: UNK
     Dates: start: 200901, end: 201111
  2. NAPROSYN [Concomitant]
     Active Substance: NAPROXEN
  3. YASMIN [Suspect]
     Active Substance: DROSPIRENONE\ETHINYL ESTRADIOL
  4. CELEXA [Concomitant]
     Active Substance: CITALOPRAM HYDROBROMIDE
  5. FLEXERIL [Concomitant]
     Active Substance: CYCLOBENZAPRINE HYDROCHLORIDE
  6. FIORICET [Concomitant]
     Active Substance: ACETAMINOPHEN\BUTALBITAL\CAFFEINE
     Indication: CONTRACEPTION
     Dosage: UNK
     Dates: start: 20080728, end: 20111104
  7. OCELLA [Suspect]
     Active Substance: DROSPIRENONE\ETHINYL ESTRADIOL
     Indication: MENSTRUAL CYCLE MANAGEMENT

REACTIONS (14)
  - Cortical laminar necrosis [None]
  - Anxiety [None]
  - Cerebrovascular accident [None]
  - Injury [None]
  - Vision blurred [None]
  - Cerebral ischaemia [None]
  - Cerebral infarction [None]
  - Pain [None]
  - Headache [None]
  - Cerebral artery occlusion [None]
  - General physical health deterioration [None]
  - Emotional distress [None]
  - Paradoxical embolism [None]
  - Mental disorder [None]

NARRATIVE: CASE EVENT DATE: 20111031
